FAERS Safety Report 7062693-2 (Version None)
Quarter: 2010Q4

REPORT INFORMATION
  Report Type: 
  Country: None (occurrence: None)
  Receive Date: 20101026
  Receipt Date: 20100105
  Transmission Date: 20110411
  Serious: No
  Sender: FDA-Public Use
  Company Number: US-PFIZER INC-2010002550

PATIENT
  Sex: Female
  Weight: 86.2 kg

DRUGS (7)
  1. LIPITOR [Suspect]
     Indication: BLOOD CHOLESTEROL INCREASED
     Dosage: 10 MG, 1X/DAY
     Route: 048
  2. MOBIC [Concomitant]
     Indication: ARTHRITIS
     Dosage: UNK
  3. ACIPHEX [Concomitant]
     Indication: GASTRIC DISORDER
     Dosage: UNK
  4. CLONAZEPAM [Concomitant]
     Indication: SLEEP DISORDER
     Dosage: UNK
  5. VESICARE [Concomitant]
     Indication: MICTURITION DISORDER
     Dosage: UNK
  6. ESTROPIPATE [Concomitant]
     Dosage: UNK
  7. ADDERALL 10 [Concomitant]
     Dosage: UNK

REACTIONS (2)
  - HEPATIC ENZYME INCREASED [None]
  - OSTEOPENIA [None]
